FAERS Safety Report 24976785 (Version 1)
Quarter: 2025Q1

REPORT INFORMATION
  Report Type: Spontaneous
  Country: DE (occurrence: None)
  Receive Date: 20250217
  Receipt Date: 20250217
  Transmission Date: 20250408
  Serious: No
  Sender: ALEXION PHARMACEUTICALS
  Company Number: DE-AstraZeneca-2006PK00695

PATIENT
  Age: 65 Year

DRUGS (6)
  1. NEXIUM [Suspect]
     Active Substance: ESOMEPRAZOLE MAGNESIUM
     Dosage: 10 MILLIGRAM, BID
  2. RAMIPRIL [Concomitant]
     Active Substance: RAMIPRIL
  3. SELENIUM [Concomitant]
     Active Substance: SELENIUM
  4. COSOPT [Concomitant]
     Active Substance: DORZOLAMIDE HYDROCHLORIDE\TIMOLOL MALEATE
  5. AMBROXOL [Concomitant]
     Active Substance: AMBROXOL
  6. MOXIFLOXACIN HYDROCHLORIDE [Concomitant]
     Active Substance: MOXIFLOXACIN HYDROCHLORIDE

REACTIONS (2)
  - Tinnitus [Unknown]
  - Visual field defect [Unknown]
